FAERS Safety Report 6396607-5 (Version None)
Quarter: 2009Q4

REPORT INFORMATION
  Report Type: 
  Country: None (occurrence: None)
  Receive Date: 20091012
  Receipt Date: 20090616
  Transmission Date: 20100525
  Serious: No
  Sender: FDA-Public Use
  Company Number: US-ASTRAZENECA-2009UW09786

PATIENT
  Age: 59 Year
  Sex: Female
  Weight: 102.1 kg

DRUGS (6)
  1. SYMBICORT [Suspect]
     Indication: ASTHMA
     Dosage: 160/4.5 MCG  2 PUFFS
     Route: 055
     Dates: start: 20090202
  2. VILLEN DOT PATCH [Concomitant]
  3. PROVENTIL-HFA [Concomitant]
  4. DILTIAZEM [Concomitant]
  5. VITAMINS [Concomitant]
  6. CLARITIN [Concomitant]

REACTIONS (1)
  - DRUG INEFFECTIVE [None]
